FAERS Safety Report 9768147 (Version 11)
Quarter: 2014Q4

REPORT INFORMATION
  Report Type: Spontaneous
  Country: US (occurrence: US)
  Receive Date: 20131217
  Receipt Date: 20141121
  Transmission Date: 20150529
  Serious: Yes (Hospitalization, Other)
  Sender: FDA-Public Use
  Company Number: US-GLAXOSMITHKLINE-A1053769A

PATIENT
  Age: 84 Year
  Sex: Female

DRUGS (12)
  1. FLOLAN [Suspect]
     Active Substance: EPOPROSTENOL SODIUM
     Dosage: UNK
  2. FLOLAN [Suspect]
     Active Substance: EPOPROSTENOL SODIUM
     Indication: PULMONARY ARTERIAL HYPERTENSION
     Dosage: 39 NG/KG/MIN, CONC. 45,000 NG/ML, VIAL STRENGTH 1.5 MG  PUMP RATE: 70 ML/DAY52 NG/KG/MIN, CONC [...]
     Route: 042
     Dates: start: 20021018
  3. FLOLAN [Suspect]
     Active Substance: EPOPROSTENOL SODIUM
     Dosage: UNK
     Dates: start: 20021018
  4. COUMADIN [Concomitant]
     Active Substance: WARFARIN SODIUM
  5. FLOLAN [Suspect]
     Active Substance: EPOPROSTENOL SODIUM
     Dosage: 35 NG/KG/MIN
     Dates: start: 20021018
  6. WARFARIN [Concomitant]
     Active Substance: WARFARIN
  7. FLOLAN [Suspect]
     Active Substance: EPOPROSTENOL SODIUM
     Dosage: UNK
     Dates: start: 20021018
  8. FLOLAN [Suspect]
     Active Substance: EPOPROSTENOL SODIUM
     Dosage: 52NG/KG/MIN, CONTINUOUSLY
     Dates: start: 20021018
  9. FLOLAN [Suspect]
     Active Substance: EPOPROSTENOL SODIUM
     Dosage: UNK
     Dates: start: 20021018
  10. FLOLAN [Suspect]
     Active Substance: EPOPROSTENOL SODIUM
     Dosage: 52NG/KG/MIN, CONTINUOUSLYUNK
     Dates: start: 20021018
  11. TYVASO [Suspect]
     Active Substance: TREPROSTINIL
     Indication: PRODUCT USED FOR UNKNOWN INDICATION
  12. ADCIRCA [Concomitant]
     Active Substance: TADALAFIL

REACTIONS (18)
  - Haemorrhage [Unknown]
  - Medical device complication [Unknown]
  - Haemoglobin decreased [Unknown]
  - Diarrhoea [Unknown]
  - Peripheral swelling [Unknown]
  - Urinary tract infection [Unknown]
  - Pharyngeal disorder [Unknown]
  - Headache [Unknown]
  - Living in residential institution [Not Recovered/Not Resolved]
  - Depression [Unknown]
  - Throat tightness [Unknown]
  - Central venous catheterisation [Unknown]
  - Transfusion [Unknown]
  - Rash generalised [Unknown]
  - Laceration [Unknown]
  - Rehabilitation therapy [Unknown]
  - Pneumonia [Unknown]
  - Herpes zoster [Unknown]

NARRATIVE: CASE EVENT DATE: 20140804
